FAERS Safety Report 4837640-1 (Version None)
Quarter: 2005Q4

REPORT INFORMATION
  Report Type: 
  Country: None (occurrence: None)
  Receive Date: 20051123
  Receipt Date: 20051123
  Transmission Date: 20060501
  Serious: No
  Sender: FDA-Public Use
  Company Number: None

PATIENT
  Sex: Female
  Weight: 72.5755 kg

DRUGS (1)
  1. PROPOFOL [Suspect]
     Indication: GENERAL ANAESTHESIA
     Dosage: 140 MG IX IV
     Route: 042
     Dates: start: 20051117, end: 20051118

REACTIONS (4)
  - ANAESTHETIC COMPLICATION [None]
  - EXTENSOR PLANTAR RESPONSE [None]
  - MUSCLE RIGIDITY [None]
  - MUSCLE TWITCHING [None]
